FAERS Safety Report 5761187-1 (Version None)
Quarter: 2008Q2

REPORT INFORMATION
  Report Type: 
  Country: None (occurrence: None)
  Receive Date: 20080606
  Receipt Date: 20080602
  Transmission Date: 20081010
  Serious: Yes (Hospitalization)
  Sender: FDA-Public Use
  Company Number: B0523544A

PATIENT
  Age: 17 Year
  Sex: Female

DRUGS (2)
  1. ZELITREX [Suspect]
     Dosage: 2TAB PER DAY
     Route: 048
     Dates: start: 20070101
  2. ZELITREX [Suspect]
     Dosage: 6TAB PER DAY
     Route: 048
     Dates: start: 20080501

REACTIONS (2)
  - DRUG ADMINISTRATION ERROR [None]
  - KERATITIS HERPETIC [None]
